FAERS Safety Report 23580345 (Version 1)
Quarter: 2024Q1

REPORT INFORMATION
  Report Type: Spontaneous
  Country: IT (occurrence: IT)
  Receive Date: 20240229
  Receipt Date: 20240229
  Transmission Date: 20240409
  Serious: Yes (Hospitalization)
  Sender: FDA-Public Use
  Company Number: None

PATIENT
  Age: 14 Year
  Sex: Female

DRUGS (4)
  1. VINCRISTINE [Suspect]
     Active Substance: VINCRISTINE
     Indication: Acute lymphocytic leukaemia
     Dosage: 2 MG 17-24-31 MAY 2023
     Route: 042
     Dates: start: 20230517
  2. DAUNORUBICIN HYDROCHLORIDE [Suspect]
     Active Substance: DAUNORUBICIN HYDROCHLORIDE
     Indication: Acute lymphocytic leukaemia
     Dosage: 42 MG 17-24-31 MAY 2023
     Route: 042
     Dates: start: 20230517
  3. DEXAMETHASONE [Suspect]
     Active Substance: DEXAMETHASONE
     Indication: Acute lymphocytic leukaemia
     Route: 065
     Dates: start: 202305
  4. PEGASPARGASE [Suspect]
     Active Substance: PEGASPARGASE
     Indication: Acute lymphocytic leukaemia
     Route: 042
     Dates: start: 20230522

REACTIONS (4)
  - Neutropenic colitis [Recovered/Resolved]
  - Cholelithiasis [Recovered/Resolved]
  - Pseudomonal sepsis [Recovered/Resolved]
  - Calculus urinary [Recovering/Resolving]

NARRATIVE: CASE EVENT DATE: 20230602
